FAERS Safety Report 12831253 (Version 2)
Quarter: 2017Q1

REPORT INFORMATION
  Report Type: Spontaneous
  Country: US (occurrence: US)
  Receive Date: 20161008
  Receipt Date: 20170220
  Transmission Date: 20170428
  Serious: Yes (Other)
  Sender: FDA-Public Use
  Company Number: US-TEVA-699382ACC

PATIENT
  Sex: Female
  Weight: 79 kg

DRUGS (2)
  1. PARAGARD T 380A [Suspect]
     Active Substance: COPPER
     Indication: CONTRACEPTION
     Dates: start: 20160613, end: 20160928
  2. PARAGARD T 380A [Suspect]
     Active Substance: COPPER
     Dates: start: 20160928

REACTIONS (2)
  - Device dislocation [Recovered/Resolved]
  - Muscle spasms [Recovered/Resolved]
